FAERS Safety Report 6521001-3 (Version None)
Quarter: 2009Q4

REPORT INFORMATION
  Report Type: 
  Country: None (occurrence: None)
  Receive Date: 20091229
  Receipt Date: 20091221
  Transmission Date: 20100525
  Serious: Yes (Other)
  Sender: FDA-Public Use
  Company Number: GB-ABBOTT-09P-167-0606749-00

PATIENT

DRUGS (3)
  1. HUMIRA [Suspect]
     Indication: RHEUMATOID ARTHRITIS
     Dates: start: 20080109, end: 20091104
  2. HUMIRA [Suspect]
     Indication: PSORIASIS
  3. NEOTICASON [Concomitant]
     Indication: PSORIASIS
     Route: 048
     Dates: start: 20060601

REACTIONS (4)
  - BASAL CELL CARCINOMA [None]
  - KERATOACANTHOMA [None]
  - PSORIASIS [None]
  - SKIN PAPILLOMA [None]
